FAERS Safety Report 5046350-X (Version None)
Quarter: 2006Q3

REPORT INFORMATION
  Report Type: 
  Country: None (occurrence: None)
  Receive Date: 20060710
  Receipt Date: 20060628
  Transmission Date: 20061208
  Serious: Yes (Hospitalization, Other)
  Sender: FDA-Public Use
  Company Number: JP-MERCK-0607USA00111

PATIENT
  Age: 73 Year
  Sex: Female

DRUGS (15)
  1. STROMECTOL [Suspect]
     Indication: ACARODERMATITIS
     Route: 048
     Dates: start: 20060517, end: 20060517
  2. VITAMIN D (UNSPECIFIED) [Suspect]
     Route: 041
  3. LIMAS [Concomitant]
     Route: 048
  4. FLUVOXAMINE MALEATE [Concomitant]
     Route: 048
  5. PARLODEL [Concomitant]
     Route: 048
  6. SYMMETREL [Concomitant]
     Route: 048
  7. GASCON [Concomitant]
     Route: 048
  8. BUFFERIN [Concomitant]
     Route: 048
  9. LENDORMIN [Concomitant]
     Route: 048
  10. PURSENNID [Concomitant]
     Route: 048
  11. RISPERDAL [Concomitant]
     Route: 048
  12. SINEMET [Concomitant]
     Route: 048
  13. AMOBAN [Concomitant]
     Route: 048
  14. TAKEPRON [Concomitant]
     Route: 048
  15. MAGNESIUM OXIDE [Concomitant]
     Route: 048

REACTIONS (7)
  - DELIRIUM TREMENS [None]
  - DEPRESSED LEVEL OF CONSCIOUSNESS [None]
  - HALLUCINATION [None]
  - HYPERCALCAEMIA [None]
  - PNEUMONIA [None]
  - RENAL FAILURE ACUTE [None]
  - VOMITING [None]
